FAERS Safety Report 4860496-8 (Version None)
Quarter: 2005Q4

REPORT INFORMATION
  Report Type: 
  Country: None (occurrence: None)
  Receive Date: 20051219
  Receipt Date: 20051124
  Transmission Date: 20060501
  Serious: Yes (Death, Other)
  Sender: FDA-Public Use
  Company Number: GB-AVENTIS-200514635EU

PATIENT
  Age: 45 Year
  Sex: Female

DRUGS (8)
  1. LANTUS [Suspect]
     Route: 058
  2. ZOPICLONE [Suspect]
  3. CIPRAMIL [Suspect]
     Route: 048
  4. DIAZEPAM [Suspect]
  5. NOVORAPID [Suspect]
     Indication: DIABETES MELLITUS
     Route: 058
  6. PYRIDOXINE HCL [Concomitant]
     Route: 048
  7. LIOTHYRONINE [Concomitant]
     Route: 048
  8. THYROXINE [Concomitant]
     Route: 048

REACTIONS (2)
  - COMPLETED SUICIDE [None]
  - INTENTIONAL OVERDOSE [None]
